FAERS Safety Report 22631235 (Version 1)
Quarter: 2023Q2

REPORT INFORMATION
  Report Type: Spontaneous
  Country: US (occurrence: US)
  Receive Date: 20230623
  Receipt Date: 20230623
  Transmission Date: 20230722
  Serious: No
  Sender: FDA-Public Use
  Company Number: US-009507513-2305USA010265

PATIENT
  Sex: Male

DRUGS (21)
  1. JANUVIA [Suspect]
     Active Substance: SITAGLIPTIN PHOSPHATE
     Indication: Type 2 diabetes mellitus
     Dosage: 100 MG/DAILY
     Route: 048
     Dates: start: 202303, end: 2023
  2. JANUVIA [Suspect]
     Active Substance: SITAGLIPTIN PHOSPHATE
     Dosage: 2 100 MG A DAY
     Route: 048
     Dates: start: 20230406, end: 20230528
  3. JANUVIA [Suspect]
     Active Substance: SITAGLIPTIN PHOSPHATE
     Indication: Type 2 diabetes mellitus
     Dosage: 2 DOSAGE FORM, QD
     Route: 048
     Dates: start: 2023, end: 20230405
  4. CETIRIZINE [Concomitant]
     Active Substance: CETIRIZINE HYDROCHLORIDE
  5. CEVIMELINE [Concomitant]
     Active Substance: CEVIMELINE
  6. VITAMIN B12 [Concomitant]
     Active Substance: CYANOCOBALAMIN
  7. FARXIGA [Concomitant]
     Active Substance: DAPAGLIFLOZIN PROPANEDIOL
  8. VITAMIN D2 [Concomitant]
     Active Substance: ERGOCALCIFEROL
  9. ZETIA [Concomitant]
     Active Substance: EZETIMIBE
  10. PEPCID [Concomitant]
     Active Substance: FAMOTIDINE
  11. FEBUXOSTAT [Concomitant]
     Active Substance: FEBUXOSTAT
  12. FINASTERIDE [Concomitant]
     Active Substance: FINASTERIDE
  13. MOMETASONE FUROATE [Concomitant]
     Active Substance: MOMETASONE FUROATE
  14. GLIMEPIRIDE [Concomitant]
     Active Substance: GLIMEPIRIDE
  15. GLUCOSAMINE [Concomitant]
     Active Substance: GLUCOSAMINE
  16. PLAQUENIL [Concomitant]
     Active Substance: HYDROXYCHLOROQUINE SULFATE
  17. LOVASTATIN [Concomitant]
     Active Substance: LOVASTATIN
  18. MAGNESIUM [Concomitant]
     Active Substance: MAGNESIUM
  19. METOPROLOL [Concomitant]
     Active Substance: METOPROLOL
  20. OMEPRAZOLE [Concomitant]
     Active Substance: OMEPRAZOLE
  21. TAMSULOSIN [Concomitant]
     Active Substance: TAMSULOSIN

REACTIONS (6)
  - Joint swelling [Not Recovered/Not Resolved]
  - Arthralgia [Not Recovered/Not Resolved]
  - Gait disturbance [Not Recovered/Not Resolved]
  - Accidental overdose [Unknown]
  - Inappropriate schedule of product administration [Unknown]
  - Product dispensing error [Unknown]

NARRATIVE: CASE EVENT DATE: 20230101
